FAERS Safety Report 10927973 (Version 3)
Quarter: 2015Q2

REPORT INFORMATION
  Report Type: Spontaneous
  Country: JP (occurrence: JP)
  Receive Date: 20150319
  Receipt Date: 20150415
  Transmission Date: 20150821
  Serious: Yes (Life-Threatening, Other)
  Sender: FDA-Public Use
  Company Number: JP-009507513-1503JPN002260

PATIENT
  Age: 73 Year
  Sex: Female
  Weight: 54 kg

DRUGS (23)
  1. MORPHINE HYDROCHLORIDE [Concomitant]
     Active Substance: MORPHINE HYDROCHLORIDE
     Indication: SEDATIVE THERAPY
     Dosage: 2 MG, QD
     Route: 008
     Dates: start: 20150216, end: 20150216
  2. MIYA-BM [Concomitant]
     Active Substance: CLOSTRIDIUM BUTYRICUM SPORES STRAIN M-55
     Dosage: DAILY DOSAGE UNKNOWN
     Route: 048
  3. BRIDION INTRAVENOUS 200MG [Suspect]
     Active Substance: SUGAMMADEX
     Dosage: DIVIDED DOSE FREQUENCY UNKNOWN
     Route: 042
     Dates: start: 20150119, end: 20150119
  4. ATROPINE [Concomitant]
     Active Substance: ATROPINE
     Indication: PROPHYLAXIS
     Dosage: DIVIDED DOSE FREQUENCY UNKNOWN
     Route: 042
     Dates: start: 20150216, end: 20150216
  5. NIFEDIPINE. [Concomitant]
     Active Substance: NIFEDIPINE
     Indication: HYPERTENSION
     Dosage: DAILY DOSAGE UNKNOWN
     Route: 048
  6. ESLAX INTRAVENOUS 50MG/5.0ML [Suspect]
     Active Substance: ROCURONIUM BROMIDE
     Indication: NEUROMUSCULAR BLOCKING THERAPY
     Dosage: DIVIDED DOSE FREQUENCY UNKNOWN
     Route: 042
     Dates: start: 20150119, end: 20150119
  7. CEFAMEZIN [Concomitant]
     Active Substance: CEFAZOLIN
     Dosage: 2 G, QD
     Route: 042
     Dates: start: 20150216, end: 20150216
  8. ANAPEINE [Concomitant]
     Active Substance: ROPIVACAINE HYDROCHLORIDE
     Indication: SEDATIVE THERAPY
     Dosage: 5 ML, QD
     Route: 008
     Dates: start: 20150216, end: 20150216
  9. SODIUM CHLORIDE. [Concomitant]
     Active Substance: SODIUM CHLORIDE
     Dosage: DIVIDED DOSE FREQUENCY UNKNOWN
     Route: 051
     Dates: start: 20150216, end: 20150216
  10. ESLAX INTRAVENOUS 50MG/5.0ML [Suspect]
     Active Substance: ROCURONIUM BROMIDE
     Dosage: CONTINUOUS DOSING AT 30-50MG/H,6 VIAL (TOTAL OF 8V INCLUDING A DOSE KIT)
     Route: 042
     Dates: start: 20150216, end: 20150216
  11. SEVOFLURANE. [Concomitant]
     Active Substance: SEVOFLURANE
     Indication: SEDATIVE THERAPY
     Dosage: 5% (09:44)1-1.5% (10:18), TOTAL DAILY DOSAGE UNKNOWN
     Route: 055
     Dates: start: 20150216, end: 20150216
  12. FLURBIPROFEN AXETIL [Concomitant]
     Active Substance: FLURBIPROFEN AXETIL
     Indication: SEDATIVE THERAPY
     Dosage: 25 MG, QD
     Route: 042
     Dates: start: 20150216, end: 20150216
  13. CEFAZOLIN SODIUM. [Concomitant]
     Active Substance: CEFAZOLIN SODIUM
     Indication: PROPHYLAXIS
     Dosage: 1 G, QD
     Route: 042
     Dates: start: 20150216, end: 20150216
  14. DOXAZOSIN MESYLATE. [Concomitant]
     Active Substance: DOXAZOSIN MESYLATE
     Indication: HYPERTENSION
     Dosage: DAILY DOSAGE UNKNOWN
     Route: 048
  15. VOLUVEN [Concomitant]
     Active Substance: HYDROXYETHYL STARCH 130/0.4
     Dosage: 1500 ML, QD, DIVIDED DOSE FREQUENCY UNKNOWN
     Route: 051
     Dates: start: 20150216, end: 20150216
  16. PERDIPINE [Concomitant]
     Active Substance: NICARDIPINE HYDROCHLORIDE
     Dosage: DAILY DOSE UNKNOWN
  17. REMIFENTANIL HYDROCHLORIDE [Concomitant]
     Active Substance: REMIFENTANIL HYDROCHLORIDE
     Indication: SEDATIVE THERAPY
     Dosage: 0.2 R(09:44) , 0.2-0.4 R (1 0:18), TOTAL DAILY DOSAGE UNKNOWN
     Route: 042
     Dates: start: 20150216, end: 20150216
  18. PROPAFENONE HYDROCHLORIDE. [Concomitant]
     Active Substance: PROPAFENONE HYDROCHLORIDE
     Indication: SUPRAVENTRICULAR EXTRASYSTOLES
     Dosage: DAILY DOSAGE UNKNOWN
     Route: 048
  19. BRIDION INTRAVENOUS 200MG [Suspect]
     Active Substance: SUGAMMADEX
     Indication: NEUROMUSCULAR BLOCKADE REVERSAL
     Dosage: 200 MG, 4 TIMES A DAY
     Route: 042
     Dates: start: 20150216, end: 20150216
  20. MAGNESIUM OXIDE. [Concomitant]
     Active Substance: MAGNESIUM OXIDE
     Dosage: DAILY DOSAGE UNKNOWN
     Route: 048
  21. ESOMEPRAZOLE MAGNESIUM. [Concomitant]
     Active Substance: ESOMEPRAZOLE MAGNESIUM
     Dosage: DAILY DOSAGE UNKNOWN
     Route: 048
  22. METFORMIN HYDROCHLORIDE. [Concomitant]
     Active Substance: METFORMIN HYDROCHLORIDE
     Indication: DIABETES MELLITUS
     Dosage: DAILY DOSAGE UNKNOWN
     Route: 048
     Dates: start: 2002
  23. PHYSIO 140 [Concomitant]
     Dosage: 1500 ML, QD, DIVIDED DOSE FREQUENCY UNKNOWN
     Route: 051
     Dates: start: 20150216, end: 20150216

REACTIONS (5)
  - Faecal incontinence [Recovered/Resolved]
  - Respiratory arrest [Recovered/Resolved]
  - Rectal cancer [Recovering/Resolving]
  - Recurrence of neuromuscular blockade [Recovered/Resolved]
  - Overdose [Unknown]

NARRATIVE: CASE EVENT DATE: 20150125
